FAERS Safety Report 6839363-6 (Version None)
Quarter: 2010Q3

REPORT INFORMATION
  Report Type: 
  Country: None (occurrence: None)
  Receive Date: 20100714
  Receipt Date: 20100708
  Transmission Date: 20110219
  Serious: Yes (Hospitalization, Other)
  Sender: FDA-Public Use
  Company Number: CA-ROXANE LABORATORIES, INC.-2010-RO-00811RO

PATIENT
  Age: 4 Year
  Sex: Female

DRUGS (9)
  1. FLUTICASONE PROPIONATE [Suspect]
     Indication: BRONCHIOLITIS
     Dosage: 500 MCG
     Route: 055
     Dates: start: 20050901, end: 20071201
  2. FLUTICASONE PROPIONATE [Suspect]
     Dosage: 250 MCG
     Route: 055
     Dates: start: 20071201, end: 20080501
  3. FLUTICASONE PROPIONATE [Suspect]
     Dosage: 500 MCG
     Route: 055
     Dates: start: 20080501, end: 20080701
  4. SALBUTAMOL [Suspect]
     Indication: ASTHMA
  5. SALBUTAMOL [Suspect]
     Indication: WHEEZING
  6. HYDROCORTISONE [Suspect]
     Indication: ASTHMA
     Dates: start: 20080701
  7. CICLESONIDE [Suspect]
     Indication: ASTHMA
     Dosage: 400 MCG
     Dates: start: 20080701
  8. PREDNISOLONE [Suspect]
     Indication: ASTHMA
     Dosage: 5 MG
     Dates: start: 20080701
  9. MONTELUKAST [Suspect]
     Indication: ASTHMA

REACTIONS (4)
  - ADRENAL SUPPRESSION [None]
  - FATIGUE [None]
  - PRODUCT SUBSTITUTION ISSUE [None]
  - WHEEZING [None]
